FAERS Safety Report 10368589 (Version 1)
Quarter: 2014Q3

REPORT INFORMATION
  Report Type: Spontaneous
  Country: US (occurrence: US)
  Receive Date: 20140807
  Receipt Date: 20140807
  Transmission Date: 20150326
  Serious: Yes (Life-Threatening, Hospitalization)
  Sender: FDA-Public Use
  Company Number: US-TARO-2014TAR00193

PATIENT
  Sex: Female

DRUGS (1)
  1. LAMOTRIGINE TABLETS 25 MG [Suspect]
     Active Substance: LAMOTRIGINE
     Dosage: UNK
     Dates: start: 20140315

REACTIONS (4)
  - Pain [Unknown]
  - Apparent death [Unknown]
  - Hospitalisation [Unknown]
  - Unevaluable event [None]
